FAERS Safety Report 7405686-5 (Version None)
Quarter: 2011Q2

REPORT INFORMATION
  Report Type: 
  Country: None (occurrence: None)
  Receive Date: 20110406
  Receipt Date: 20110406
  Transmission Date: 20111010
  Serious: Yes (Other)
  Sender: FDA-Public Use
  Company Number: None

PATIENT
  Age: 31 Year
  Sex: Female
  Weight: 83.9154 kg

DRUGS (2)
  1. YAZ [Suspect]
     Indication: PREMENSTRUAL SYNDROME
     Dosage: ORALLY AS DIRECTED
     Route: 048
  2. MERAINA IUD [Concomitant]

REACTIONS (3)
  - ANXIETY [None]
  - FEELING JITTERY [None]
  - PANIC ATTACK [None]
